FAERS Safety Report 6035677-0 (Version None)
Quarter: 2009Q1

REPORT INFORMATION
  Report Type: 
  Country: None (occurrence: None)
  Receive Date: 20090112
  Receipt Date: 20090112
  Transmission Date: 20090719
  Serious: Yes (Hospitalization, Other)
  Sender: FDA-Public Use
  Company Number: None

PATIENT
  Age: 9 Year
  Sex: Male
  Weight: 29.4838 kg

DRUGS (2)
  1. MIRALAX [Suspect]
     Indication: CONSTIPATION
     Dosage: 17 G EVERY DAY PO
     Route: 048
     Dates: start: 20080110, end: 20081229
  2. MIRALAX [Suspect]
     Indication: FAECALOMA
     Dosage: 17 G EVERY DAY PO
     Route: 048
     Dates: start: 20080110, end: 20081229

REACTIONS (16)
  - ABDOMINAL DISTENSION [None]
  - ABNORMAL BEHAVIOUR [None]
  - ANXIETY [None]
  - DEPRESSION [None]
  - EARLY SATIETY [None]
  - FAILURE TO THRIVE [None]
  - FEELING ABNORMAL [None]
  - FLATULENCE [None]
  - HORDEOLUM [None]
  - INSOMNIA [None]
  - MOOD ALTERED [None]
  - MUSCLE SPASMS [None]
  - NAUSEA [None]
  - NIGHTMARE [None]
  - ORAL HERPES [None]
  - WEIGHT DECREASED [None]
